FAERS Safety Report 8027870-2 (Version None)
Quarter: 2012Q1

REPORT INFORMATION
  Report Type: 
  Country: None (occurrence: None)
  Receive Date: 20120106
  Receipt Date: 20111222
  Transmission Date: 20120608
  Serious: Yes (Hospitalization)
  Sender: FDA-Public Use
  Company Number: ES-CELGENEUS-144-50794-11123139

PATIENT
  Age: 49 Year
  Sex: Female

DRUGS (3)
  1. ANTIBIOTICS [Concomitant]
     Route: 065
     Dates: start: 20111001, end: 20111001
  2. VIDAZA [Suspect]
     Route: 065
     Dates: start: 20110416, end: 20111027
  3. RED BLOOD CELLS [Concomitant]
     Route: 041
     Dates: start: 20110401, end: 20111001

REACTIONS (2)
  - FEBRILE NEUTROPENIA [None]
  - TOXICITY TO VARIOUS AGENTS [None]
